FAERS Safety Report 5780851-1 (Version None)
Quarter: 2008Q2

REPORT INFORMATION
  Report Type: 
  Country: None (occurrence: None)
  Receive Date: 20080620
  Receipt Date: 20080610
  Transmission Date: 20081010
  Serious: Yes (Other)
  Sender: FDA-Public Use
  Company Number: US-PFIZER INC-2008019861

PATIENT
  Sex: Female
  Weight: 65 kg

DRUGS (4)
  1. LYRICA [Suspect]
     Indication: COMPLEX REGIONAL PAIN SYNDROME
     Dosage: DAILY DOSE:600MG
  2. HYDROCODONE [Suspect]
     Indication: PAIN
  3. ZOLOFT [Concomitant]
  4. FLURAZEPAM [Concomitant]

REACTIONS (5)
  - DIZZINESS [None]
  - GAIT DISTURBANCE [None]
  - INFLUENZA [None]
  - INTENTIONAL DRUG MISUSE [None]
  - SEDATION [None]
